FAERS Safety Report 14914056 (Version 2)
Quarter: 2018Q2

REPORT INFORMATION
  Report Type: Report from Study
  Country: IT (occurrence: IT)
  Receive Date: 20180518
  Receipt Date: 20180529
  Transmission Date: 20180711
  Serious: Yes (Other)
  Sender: FDA-Public Use
  Company Number: IT-PFIZER INC-2018201521

PATIENT
  Age: 28 Year
  Sex: Female

DRUGS (4)
  1. DELORAZEPAM ALMUS [Suspect]
     Active Substance: DELORAZEPAM
     Indication: INTENTIONAL SELF-INJURY
     Dosage: 20 ML, TOTAL
     Route: 048
     Dates: start: 20170330, end: 20170330
  2. EFFEXOR XR [Suspect]
     Active Substance: VENLAFAXINE HYDROCHLORIDE
     Indication: INTENTIONAL SELF-INJURY
     Dosage: 150 MG, TOTAL
     Route: 048
     Dates: start: 20170330, end: 20170330
  3. FLURAZEPAM [Suspect]
     Active Substance: FLURAZEPAM\FLURAZEPAM HYDROCHLORIDE
     Indication: INTENTIONAL SELF-INJURY
     Dosage: 15 MG, TOTAL
     Route: 048
     Dates: start: 20170330, end: 20170330
  4. ARIPIPRAZOLO TEVA [Suspect]
     Active Substance: ARIPIPRAZOLE
     Indication: INTENTIONAL SELF-INJURY
     Dosage: 210 MG, TOTAL
     Route: 048
     Dates: start: 20170330, end: 20170330

REACTIONS (2)
  - Feeding disorder [Recovering/Resolving]
  - Personality disorder [Recovering/Resolving]

NARRATIVE: CASE EVENT DATE: 20170330
